FAERS Safety Report 19476441 (Version 5)
Quarter: 2023Q2

REPORT INFORMATION
  Report Type: Report from Study
  Country: JP (occurrence: JP)
  Receive Date: 20210630
  Receipt Date: 20230602
  Transmission Date: 20230722
  Serious: Yes (Hospitalization, Other)
  Sender: FDA-Public Use
  Company Number: JP-ASTELLAS-2021JP012417

PATIENT
  Age: 78 Year
  Sex: Male
  Weight: 62 kg

DRUGS (22)
  1. ENZALUTAMIDE [Suspect]
     Active Substance: ENZALUTAMIDE
     Indication: Hormone-dependent prostate cancer
     Route: 048
     Dates: start: 20171102, end: 20181016
  2. ENZALUTAMIDE [Suspect]
     Active Substance: ENZALUTAMIDE
     Route: 048
     Dates: start: 20181104
  3. ENZALUTAMIDE [Suspect]
     Active Substance: ENZALUTAMIDE
     Route: 048
     Dates: start: 20190319
  4. ENZALUTAMIDE [Suspect]
     Active Substance: ENZALUTAMIDE
     Dosage: 80 MG, ONCE DAILY, IN THE MORNING
     Route: 048
     Dates: end: 20201103
  5. ENZALUTAMIDE [Suspect]
     Active Substance: ENZALUTAMIDE
     Route: 048
     Dates: start: 20201124, end: 20210928
  6. ENZALUTAMIDE [Suspect]
     Active Substance: ENZALUTAMIDE
     Route: 048
     Dates: start: 20211019, end: 20230510
  7. CLOBETASONE BUTYRATE [Concomitant]
     Active Substance: CLOBETASONE BUTYRATE
     Indication: Dermatitis allergic
     Dosage: ADEQUATE DOSE, UNKNOWN FREQ.
     Route: 061
     Dates: start: 20121213
  8. FLUFENAMIC ACID [Concomitant]
     Active Substance: FLUFENAMIC ACID
     Indication: Dermatitis allergic
     Dosage: ADEQUATE DOSE, UNKNOWN FREQ.
     Route: 061
     Dates: start: 20121213
  9. SILODOSIN [Concomitant]
     Active Substance: SILODOSIN
     Indication: Benign prostatic hyperplasia
     Dosage: 2 MG/DAY, UNKNOWN FREQ.
     Route: 048
     Dates: start: 20141211
  10. SILODOSIN [Concomitant]
     Active Substance: SILODOSIN
     Indication: Benign prostatic hyperplasia
     Dosage: UNK UNK, UNKNOWN FREQ.
     Route: 048
     Dates: start: 201702
  11. CALCIUM CARBONATE\CHOLECALCIFEROL\MAGNESIUM CARBONATE [Concomitant]
     Active Substance: CALCIUM CARBONATE\CHOLECALCIFEROL\MAGNESIUM CARBONATE
     Indication: Prophylaxis
     Dosage: UNK UNK, UNKNOWN FREQ.
     Route: 048
     Dates: start: 20171016
  12. DENOSUMAB [Concomitant]
     Active Substance: DENOSUMAB
     Indication: Prophylaxis
     Route: 058
     Dates: start: 20171016
  13. BILASTINE [Concomitant]
     Active Substance: BILASTINE
     Indication: Dermatitis allergic
     Dosage: 20 MG/DAY, UNKNOWN FREQ.
     Route: 048
     Dates: start: 20171016
  14. LEUPLIN [Concomitant]
     Active Substance: LEUPROLIDE ACETATE
     Indication: Antiandrogen therapy
     Dosage: 22.5 MG, EVERY 6 MONTHS
     Route: 042
     Dates: start: 20171130
  15. LEUPLIN [Concomitant]
     Active Substance: LEUPROLIDE ACETATE
     Indication: Prostate cancer
  16. BILASTINE [Concomitant]
     Active Substance: BILASTINE
     Indication: Dermatitis allergic
     Dosage: UNK UNK, UNKNOWN FREQ.
     Route: 048
     Dates: start: 20171207
  17. MICARDIS [Concomitant]
     Active Substance: TELMISARTAN
     Indication: Hypertension
     Dosage: UNK UNK, UNKNOWN FREQ.
     Route: 048
     Dates: start: 20191126
  18. COVID-19 vaccine [Concomitant]
     Indication: COVID-19 prophylaxis
     Dosage: UNK UNK, UNKNOWN FREQ.
     Route: 030
     Dates: start: 20210602, end: 20210602
  19. COVID-19 vaccine [Concomitant]
     Dosage: UNK UNK, UNKNOWN FREQ.
     Route: 030
     Dates: start: 20210623, end: 20210623
  20. COVID-19 vaccine [Concomitant]
     Dosage: UNK UNK, UNKNOWN FREQ.
     Route: 030
     Dates: start: 20220124, end: 20220124
  21. COVID-19 vaccine [Concomitant]
     Dosage: UNK UNK, UNKNOWN FREQ.
     Route: 030
     Dates: start: 20220627, end: 20220627
  22. COVID-19 vaccine [Concomitant]
     Dosage: UNK UNK, UNKNOWN FREQ.
     Route: 030
     Dates: start: 20221111, end: 20221111

REACTIONS (8)
  - Electrocardiogram T wave inversion [Not Recovered/Not Resolved]
  - Lung neoplasm malignant [Recovered/Resolved]
  - Large intestine polyp [Recovered/Resolved]
  - Adenocarcinoma [Recovered/Resolved]
  - Phrenic nerve paralysis [Not Recovered/Not Resolved]
  - Colorectal adenoma [Recovered/Resolved]
  - Diverticulum intestinal [Not Recovered/Not Resolved]
  - Intercostal neuralgia [Not Recovered/Not Resolved]

NARRATIVE: CASE EVENT DATE: 20200730
